FAERS Safety Report 10401619 (Version 2)
Quarter: 2014Q3

REPORT INFORMATION
  Report Type: Spontaneous
  Country: US (occurrence: None)
  Receive Date: 20130815
  Receipt Date: 20140815
  Transmission Date: 20150326
  Serious: Yes (Hospitalization, Other)
  Sender: FDA-Public Use
  Company Number: ADR-2012-01563

PATIENT
  Sex: Male

DRUGS (3)
  1. LIORESAL [Suspect]
     Active Substance: BACLOFEN
  2. ORAL BACLOFEN [Suspect]
     Active Substance: BACLOFEN
  3. LIORESAL [Suspect]
     Active Substance: BACLOFEN
     Indication: MUSCLE SPASTICITY

REACTIONS (12)
  - Overdose [None]
  - Muscle tightness [None]
  - Pain [None]
  - Depression [None]
  - No therapeutic response [None]
  - Drug withdrawal syndrome [None]
  - Muscle contracture [None]
  - Dyskinesia [None]
  - Lethargy [None]
  - Muscle spasms [None]
  - Insomnia [None]
  - Muscle spasticity [None]
